FAERS Safety Report 24230846 (Version 1)
Quarter: 2024Q3

REPORT INFORMATION
  Report Type: Spontaneous
  Country: BR (occurrence: BR)
  Receive Date: 20240821
  Receipt Date: 20240821
  Transmission Date: 20241016
  Serious: Yes (Other)
  Sender: CELLTRION
  Company Number: BR-CELLTRION INC.-2023BR002256

PATIENT

DRUGS (7)
  1. INFLIXIMAB [Suspect]
     Active Substance: INFLIXIMAB
     Indication: Crohn^s disease
     Dosage: 3 AMPOULES EVERY 2 MONTHS
     Route: 042
     Dates: start: 202302
  2. INFLIXIMAB [Suspect]
     Active Substance: INFLIXIMAB
     Dosage: FIRST DOSE: 340MG EVERY 8 WEEKS
     Route: 042
     Dates: start: 20230214
  3. INFLIXIMAB [Suspect]
     Active Substance: INFLIXIMAB
     Dosage: 2ND DOSE: 340MG EVERY 8 WEEKS
     Route: 042
     Dates: start: 20230505
  4. INFLIXIMAB [Suspect]
     Active Substance: INFLIXIMAB
     Dosage: 340MG EVERY 8 WEEKS
     Route: 042
     Dates: start: 20230508
  5. METFORMIN [Concomitant]
     Active Substance: METFORMIN HYDROCHLORIDE
     Indication: Crohn^s disease
     Dosage: 4 PILLS A DAY
     Route: 048
  6. MESALAMINE [Concomitant]
     Active Substance: MESALAMINE
  7. DIVALPROEX SODIUM [Concomitant]
     Active Substance: DIVALPROEX SODIUM

REACTIONS (15)
  - Syncope [Recovered/Resolved]
  - Mood swings [Recovered/Resolved]
  - Psychomotor hyperactivity [Recovered/Resolved]
  - Malaise [Recovered/Resolved]
  - Speech disorder [Recovered/Resolved]
  - Muscle spasms [Recovered/Resolved]
  - Flushing [Recovered/Resolved]
  - Dyspnoea [Recovered/Resolved]
  - Dizziness [Recovered/Resolved]
  - Somnolence [Recovered/Resolved]
  - Confusional state [Recovered/Resolved]
  - Irritability [Recovered/Resolved]
  - Abdominal pain [Recovered/Resolved]
  - Treatment delayed [Unknown]
  - Underdose [Unknown]

NARRATIVE: CASE EVENT DATE: 20230505
